FAERS Safety Report 21169055 (Version 1)
Quarter: 2022Q3

REPORT INFORMATION
  Report Type: Report from Study
  Country: US (occurrence: US)
  Receive Date: 20220803
  Receipt Date: 20220803
  Transmission Date: 20221027
  Serious: Yes (Hospitalization, Other)
  Sender: FDA-Public Use
  Company Number: US-GILEAD-2022-0592306

PATIENT
  Age: 64 Year
  Sex: Male

DRUGS (7)
  1. REMDESIVIR [Suspect]
     Active Substance: REMDESIVIR
     Indication: COVID-19
     Dosage: 200 MG, PRIOR TO ENROLLMENT IN STUDY
     Route: 042
     Dates: start: 20211102, end: 20211102
  2. REMDESIVIR [Suspect]
     Active Substance: REMDESIVIR
     Dosage: 100 MG, QD
     Route: 042
     Dates: start: 20211103, end: 20211106
  3. CYCLOSPORINE [Suspect]
     Active Substance: CYCLOSPORINE
     Indication: COVID-19
     Dosage: 240 MG
     Route: 048
     Dates: start: 20211103, end: 20211103
  4. CYCLOSPORINE [Suspect]
     Active Substance: CYCLOSPORINE
     Dosage: 480 MG, QD
     Route: 048
     Dates: start: 20211104, end: 20211107
  5. CYCLOSPORINE [Suspect]
     Active Substance: CYCLOSPORINE
     Dosage: 240 MG, QD
     Route: 048
     Dates: start: 20211108, end: 20211108
  6. DEXAMETHASONE [Concomitant]
     Active Substance: DEXAMETHASONE
     Dosage: 10 DAYS
  7. OXYGEN [Concomitant]
     Active Substance: OXYGEN
     Dosage: HFNC

REACTIONS (1)
  - Embolism [Recovered/Resolved]

NARRATIVE: CASE EVENT DATE: 20211114
